FAERS Safety Report 5244004-8 (Version None)
Quarter: 2007Q1

REPORT INFORMATION
  Report Type: 
  Country: None (occurrence: None)
  Receive Date: 20070215
  Receipt Date: 20070206
  Transmission Date: 20070707
  Serious: Yes (Other)
  Sender: FDA-Public Use
  Company Number: 30860

PATIENT
  Sex: Female

DRUGS (1)
  1. ALDARA [Suspect]
     Dosage: TOPICAL
     Route: 061

REACTIONS (1)
  - LYMPHOMA [None]
